FAERS Safety Report 10267329 (Version 2)
Quarter: 2014Q4

REPORT INFORMATION
  Report Type: Spontaneous
  Country: IT (occurrence: IT)
  Receive Date: 20140630
  Receipt Date: 20141113
  Transmission Date: 20150528
  Serious: Yes (Hospitalization)
  Sender: FDA-Public Use
  Company Number: IT-ROCHE-1427012

PATIENT
  Sex: Male
  Weight: 61 kg

DRUGS (1)
  1. MABTHERA [Suspect]
     Active Substance: RITUXIMAB
     Indication: B-CELL LYMPHOMA
     Route: 042
     Dates: start: 20131216, end: 20140116

REACTIONS (1)
  - Gastric stenosis [Recovered/Resolved]

NARRATIVE: CASE EVENT DATE: 20140116
